FAERS Safety Report 14145144 (Version 4)
Quarter: 2018Q4

REPORT INFORMATION
  Report Type: Report from Study
  Country: US (occurrence: US)
  Receive Date: 20171031
  Receipt Date: 20181026
  Transmission Date: 20190204
  Serious: Yes (Other)
  Sender: FDA-Public Use
  Company Number: US-JAZZ-2017-US-014026

PATIENT
  Sex: Male

DRUGS (2)
  1. XYREM [Suspect]
     Active Substance: SODIUM OXYBATE
     Indication: NARCOLEPSY
     Dosage: 2.5 G, QD
     Route: 048
     Dates: start: 201706, end: 201707
  2. XYREM [Suspect]
     Active Substance: SODIUM OXYBATE
     Dosage: 3 G, QD
     Route: 048
     Dates: start: 201707

REACTIONS (5)
  - Diabetes mellitus [Recovering/Resolving]
  - Blood pressure increased [Unknown]
  - Nephritis [Unknown]
  - Cystitis noninfective [Unknown]
  - Prostatitis [Unknown]
